FAERS Safety Report 24234623 (Version 7)
Quarter: 2024Q4

REPORT INFORMATION
  Report Type: Spontaneous
  Country: US (occurrence: US)
  Receive Date: 20240821
  Receipt Date: 20241105
  Transmission Date: 20250115
  Serious: Yes (Death, Hospitalization)
  Sender: PFIZER
  Company Number: US-PFIZER INC-202400240500

PATIENT
  Age: 36 Year
  Sex: Female

DRUGS (4)
  1. OXBRYTA [Suspect]
     Active Substance: VOXELOTOR
     Dosage: 1500
     Dates: start: 202407, end: 20240927
  2. OXBRYTA [Suspect]
     Active Substance: VOXELOTOR
     Dosage: 500 MG, 3 TABLETS, ONCE DAILY
     Route: 048
     Dates: start: 20240813
  3. OXBRYTA [Suspect]
     Active Substance: VOXELOTOR
     Dosage: 1 DF, 3X/DAY
     Route: 048
     Dates: start: 202408, end: 202408
  4. ENDARI [Concomitant]
     Active Substance: GLUTAMINE
     Dosage: UNK
     Dates: start: 20240819

REACTIONS (7)
  - Death [Fatal]
  - Pyrexia [Unknown]
  - Back pain [Not Recovered/Not Resolved]
  - Fatigue [Unknown]
  - Abdominal pain upper [Not Recovered/Not Resolved]
  - Nausea [Not Recovered/Not Resolved]
  - Intentional product misuse [Unknown]

NARRATIVE: CASE EVENT DATE: 20240101
